FAERS Safety Report 7523519-3 (Version None)
Quarter: 2011Q2

REPORT INFORMATION
  Report Type: 
  Country: None (occurrence: None)
  Receive Date: 20110603
  Receipt Date: 20110520
  Transmission Date: 20111010
  Serious: No
  Sender: FDA-Public Use
  Company Number: US-B.I. PHARMACEUTICALS,INC./RIDGEFIELD-2011-BP-13623BP

PATIENT
  Sex: Female

DRUGS (8)
  1. LEVOTHYROXINE SODIUM [Concomitant]
     Indication: HYPOTHYROIDISM
  2. ZOCOR [Concomitant]
     Indication: BLOOD CHOLESTEROL INCREASED
  3. TRAZODONE HCL [Concomitant]
     Indication: NEUROPATHY PERIPHERAL
  4. DETROL LA [Concomitant]
     Indication: HYPERTONIC BLADDER
  5. LYRICA [Concomitant]
     Indication: FIBROMYALGIA
  6. TOPROL-XL [Concomitant]
  7. PRADAXA [Suspect]
     Indication: PULMONARY EMBOLISM
     Dosage: 300 MG
     Route: 048
     Dates: start: 20110510
  8. FORTICAL [Concomitant]
     Indication: BLOOD CHOLESTEROL INCREASED

REACTIONS (3)
  - FLATULENCE [None]
  - DYSPEPSIA [None]
  - CHEST PAIN [None]
